FAERS Safety Report 21045763 (Version 1)
Quarter: 2022Q3

REPORT INFORMATION
  Report Type: Spontaneous
  Country: US (occurrence: US)
  Receive Date: 20220706
  Receipt Date: 20220706
  Transmission Date: 20221027
  Serious: Yes (Death, Other)
  Sender: FDA-Public Use
  Company Number: US-BRISTOL-MYERS SQUIBB COMPANY-2022-068608

PATIENT
  Age: 86 Year
  Sex: Female

DRUGS (3)
  1. OPDIVO [Suspect]
     Active Substance: NIVOLUMAB
     Indication: Follicular lymphoma
     Dosage: DOSE : 240 MG;     FREQ : ^240 MG ON DAY 1 AND DAY 15 EVERY 28 DAYS^
     Route: 065
  2. NYSTATIN [Concomitant]
     Active Substance: NYSTATIN
  3. PREDNISONE [Concomitant]
     Active Substance: PREDNISONE

REACTIONS (2)
  - Death [Fatal]
  - Intentional product use issue [Unknown]
